FAERS Safety Report 24211196 (Version 3)
Quarter: 2024Q4

REPORT INFORMATION
  Report Type: Spontaneous
  Country: US (occurrence: US)
  Receive Date: 20240814
  Receipt Date: 20241004
  Transmission Date: 20250115
  Serious: Yes (Other)
  Sender: SANOFI AVENTIS
  Company Number: US-SA-SAC20240814000285

PATIENT
  Age: 13 Year
  Sex: Male
  Weight: 38.5 kg

DRUGS (1)
  1. DUPIXENT [Suspect]
     Active Substance: DUPILUMAB
     Indication: Eosinophilic oesophagitis
     Dosage: 300 MG, QW
     Route: 058
     Dates: start: 20240804

REACTIONS (7)
  - Choking [Recovered/Resolved]
  - Skin swelling [Recovered/Resolved]
  - Product dose omission issue [Recovered/Resolved]
  - Erythema [Unknown]
  - Injection site pruritus [Unknown]
  - Injection site urticaria [Unknown]
  - Incorrect dose administered [Unknown]

NARRATIVE: CASE EVENT DATE: 20240101
